FAERS Safety Report 4363153-X (Version None)
Quarter: 2004Q2

REPORT INFORMATION
  Report Type: 
  Country: None (occurrence: None)
  Receive Date: 20040524
  Receipt Date: 20020311
  Transmission Date: 20050107
  Serious: No
  Sender: FDA-Public Use
  Company Number: US-GLAXOSMITHKLINE-A0363587A

PATIENT
  Age: 62 Year
  Sex: Female
  Weight: 93.2 kg

DRUGS (11)
  1. BACTROBAN [Suspect]
     Route: 045
     Dates: start: 20000501
  2. ALLEGRA [Concomitant]
     Indication: ILL-DEFINED DISORDER
  3. NORVASC [Concomitant]
     Indication: ILL-DEFINED DISORDER
  4. GLYBURIDE-MICRONASE [Concomitant]
     Indication: ILL-DEFINED DISORDER
  5. LANOXIN [Concomitant]
     Indication: ILL-DEFINED DISORDER
  6. FUROSEMIDE [Concomitant]
     Indication: ILL-DEFINED DISORDER
  7. IBUPROFEN [Concomitant]
     Indication: ILL-DEFINED DISORDER
  8. OXYCODONE AND ACETAMINOPHEN [Concomitant]
     Indication: ILL-DEFINED DISORDER
  9. DELESTROGEN [Concomitant]
     Indication: ILL-DEFINED DISORDER
  10. DIFLUCAN [Concomitant]
     Indication: ILL-DEFINED DISORDER
  11. DIAZEPAM [Concomitant]
     Indication: ILL-DEFINED DISORDER

REACTIONS (7)
  - AGEUSIA [None]
  - ANOSMIA [None]
  - INTRANASAL NUMBNESS [None]
  - MEDICATION ERROR [None]
  - NASAL DISCOMFORT [None]
  - NASAL DISORDER [None]
  - NASAL SEPTUM DEVIATION [None]
